FAERS Safety Report 4334511-4 (Version None)
Quarter: 2004Q2

REPORT INFORMATION
  Report Type: 
  Country: None (occurrence: None)
  Receive Date: 20040407
  Receipt Date: 20040323
  Transmission Date: 20050107
  Serious: Yes (Congenital Anomaly)
  Sender: FDA-Public Use
  Company Number: ZA-GLAXOSMITHKLINE-B0327733A

PATIENT

DRUGS (1)
  1. PAROXETINE HCL [Suspect]
     Indication: OBSESSIVE-COMPULSIVE DISORDER

REACTIONS (2)
  - DRUG EXPOSURE DURING PREGNANCY [None]
  - URETERIC STENOSIS [None]
